FAERS Safety Report 9439215 (Version 1)
Quarter: 2013Q3

REPORT INFORMATION
  Report Type: Report from Study
  Country: BR (occurrence: BR)
  Receive Date: 20130804
  Receipt Date: 20130804
  Transmission Date: 20140515
  Serious: Yes (Death, Other)
  Sender: FDA-Public Use
  Company Number: BR-US-EMD SERONO, INC.-7227629

PATIENT
  Age: 43 Year
  Sex: Female

DRUGS (1)
  1. REBIF [Suspect]
     Indication: MULTIPLE SCLEROSIS
     Dates: start: 19980601, end: 20130422

REACTIONS (6)
  - Multi-organ failure [Fatal]
  - Abdominal infection [Fatal]
  - Hysterectomy [Unknown]
  - Ovarian cyst [Unknown]
  - Post procedural complication [Unknown]
  - Pain [Unknown]
